FAERS Safety Report 7263370-5 (Version None)
Quarter: 2011Q1

REPORT INFORMATION
  Report Type: 
  Country: None (occurrence: None)
  Receive Date: 20110130
  Receipt Date: 20101102
  Transmission Date: 20110831
  Serious: No
  Sender: FDA-Public Use
  Company Number: US-ABBOTT-10P-163-0673396-00

PATIENT
  Age: 58 Year
  Sex: Female

DRUGS (6)
  1. BLOOD PRESSURE PILL [Concomitant]
     Indication: BLOOD PRESSURE
  2. HIGH CHOLESTEROL MEDICATION [Concomitant]
     Indication: BLOOD CHOLESTEROL INCREASED
  3. HUMIRA [Suspect]
     Indication: RHEUMATOID ARTHRITIS
     Dates: start: 20100901
  4. PAIN MEDICATION [Concomitant]
     Indication: PAIN
  5. XANAX [Concomitant]
     Indication: ANXIETY
  6. HORMONE PILL [Concomitant]
     Indication: PRODUCT USED FOR UNKNOWN INDICATION

REACTIONS (1)
  - DECREASED APPETITE [None]
